FAERS Safety Report 9213138 (Version 1)
Quarter: 2013Q1

REPORT INFORMATION
  Report Type: Spontaneous
  Country: US (occurrence: None)
  Receive Date: 20120820
  Receipt Date: 20120820
  Transmission Date: 20140127
  Serious: No
  Sender: FDA-Public Use
  Company Number: 1000030692

PATIENT
  Age: 67 Year
  Sex: Female

DRUGS (4)
  1. VIIBRYD [Suspect]
     Indication: DEPRESSION
     Dosage: (10 MG, 1 IN1 D) ORAL
     Route: 048
     Dates: start: 20120113, end: 20120119
  2. VIIBRYD [Suspect]
     Dates: start: 20120120, end: 201201
  3. LEVOTHYROXINE (LEVOTHYROXINE SODIUM) (LEVOTHYROXINE SODIUM) [Concomitant]
  4. XANAX (ALPRAZOLAM) (ALPRAZOLAM) [Concomitant]

REACTIONS (2)
  - Diarrhoea [None]
  - Muscle spasms [None]
